FAERS Safety Report 16861935 (Version 1)
Quarter: 2019Q3

REPORT INFORMATION
  Report Type: Spontaneous
  Country: CA (occurrence: CA)
  Receive Date: 20190927
  Receipt Date: 20190927
  Transmission Date: 20191005
  Serious: Yes (Other)
  Sender: FDA-Public Use
  Company Number: CA-TEVA-2019-CA-1113835

PATIENT
  Sex: Female
  Weight: 53 kg

DRUGS (7)
  1. DESLORATADINE. [Concomitant]
     Active Substance: DESLORATADINE
     Route: 065
  2. IBUPROFEN. [Suspect]
     Active Substance: IBUPROFEN
     Indication: HEADACHE
     Route: 065
  3. ETHINYL ESTRADIOL [Concomitant]
     Active Substance: ETHINYL ESTRADIOL
  4. IBUPROFEN. [Suspect]
     Active Substance: IBUPROFEN
     Indication: PAIN
     Route: 048
  5. VALACICLOVIR [Suspect]
     Active Substance: VALACYCLOVIR HYDROCHLORIDE
     Indication: ORAL HERPES
     Route: 048
  6. NAPROXEN. [Suspect]
     Active Substance: NAPROXEN
     Indication: HEADACHE
     Route: 048
  7. LEVONORGESTREL. [Concomitant]
     Active Substance: LEVONORGESTREL

REACTIONS (1)
  - Acute kidney injury [Recovered/Resolved]
